FAERS Safety Report 8590305-5 (Version None)
Quarter: 2012Q3

REPORT INFORMATION
  Report Type: 
  Country: None (occurrence: None)
  Receive Date: 20120813
  Receipt Date: 20120718
  Transmission Date: 20120928
  Serious: Yes (Hospitalization)
  Sender: FDA-Public Use
  Company Number: JP-GLAXOSMITHKLINE-B0816537A

PATIENT
  Age: 26 Year
  Sex: Female

DRUGS (7)
  1. ZOLOFT [Concomitant]
     Dosage: 25MG PER DAY
     Route: 048
     Dates: start: 20120502, end: 20120529
  2. PAXIL [Suspect]
     Dosage: 15MG PER DAY
     Route: 048
     Dates: start: 20120530, end: 20120630
  3. FLUNITRAZEPAM [Concomitant]
     Indication: INSOMNIA
     Dosage: 2MG PER DAY
     Route: 048
     Dates: end: 20120630
  4. PAXIL [Suspect]
     Indication: DEPRESSION
     Dosage: 10MG PER DAY
     Route: 048
     Dates: start: 20120404, end: 20120529
  5. ZOLOFT [Concomitant]
     Indication: DEPRESSED MOOD
     Dosage: 50MG PER DAY
     Route: 048
     Dates: end: 20120501
  6. ZYPREXA [Concomitant]
     Indication: INSOMNIA
     Dosage: 5MG PER DAY
     Route: 048
     Dates: end: 20120630
  7. HALCION [Concomitant]
     Indication: INSOMNIA
     Dosage: .25MG PER DAY
     Route: 048
     Dates: end: 20120630

REACTIONS (5)
  - IRRITABILITY [None]
  - IMPULSIVE BEHAVIOUR [None]
  - OVERDOSE [None]
  - COMA [None]
  - PNEUMONIA ASPIRATION [None]
